FAERS Safety Report 5285540-8 (Version None)
Quarter: 2007Q1

REPORT INFORMATION
  Report Type: 
  Country: None (occurrence: None)
  Receive Date: 20061227
  Receipt Date: 20061020
  Transmission Date: 20070707
  Serious: Yes (Hospitalization)
  Sender: FDA-Public Use
  Company Number: A03200606374

PATIENT
  Age: 80 Year
  Sex: Female

DRUGS (1)
  1. AMBIEN [Suspect]
     Indication: SLEEP DISORDER
     Dosage: 6.25 MG HS - ORAL
     Route: 048
     Dates: start: 20060824, end: 20060825

REACTIONS (3)
  - DIZZINESS [None]
  - HEART RATE INCREASED [None]
  - HYPERHIDROSIS [None]
